FAERS Safety Report 5097424-9 (Version None)
Quarter: 2006Q3

REPORT INFORMATION
  Report Type: 
  Country: None (occurrence: None)
  Receive Date: 20060901
  Receipt Date: 20060815
  Transmission Date: 20061208
  Serious: Yes (Hospitalization, Other)
  Sender: FDA-Public Use
  Company Number: US200608003635

PATIENT
  Age: 21 Year
  Sex: Male

DRUGS (4)
  1. ZYPREXA [Suspect]
  2. ZYRTEC [Concomitant]
  3. ATENOLOL [Concomitant]
  4. CATAPRES-TTS-1 [Concomitant]

REACTIONS (10)
  - CIRCUMSTANCE OR INFORMATION CAPABLE OF LEADING TO MEDICATION ERROR [None]
  - CONVULSION [None]
  - DRUG DISPENSING ERROR [None]
  - FAECAL INCONTINENCE [None]
  - FALL [None]
  - HEART RATE IRREGULAR [None]
  - HYPOTENSION [None]
  - SOMNOLENCE [None]
  - URINARY INCONTINENCE [None]
  - WRONG DRUG ADMINISTERED [None]
